FAERS Safety Report 12310923 (Version 3)
Quarter: 2016Q2

REPORT INFORMATION
  Report Type: Spontaneous
  Country: CN (occurrence: CN)
  Receive Date: 20160427
  Receipt Date: 20160607
  Transmission Date: 20160815
  Serious: Yes (Other)
  Sender: FDA-Public Use
  Company Number: CN-BAYER-2016-072781

PATIENT
  Sex: Female

DRUGS (1)
  1. MIRENA [Suspect]
     Active Substance: LEVONORGESTREL
     Indication: ADENOMYOSIS
     Dosage: 20 MCG/24HR, CONT
     Route: 015
     Dates: start: 201511

REACTIONS (7)
  - Angiopathy [None]
  - Headache [None]
  - Nerve injury [None]
  - Head discomfort [None]
  - Pre-existing condition improved [None]
  - Eye pain [Not Recovered/Not Resolved]
  - Off label use of device [None]

NARRATIVE: CASE EVENT DATE: 201603
